FAERS Safety Report 9160099 (Version 2)
Quarter: 2013Q1

REPORT INFORMATION
  Report Type: Spontaneous
  Country: FR (occurrence: FR)
  Receive Date: 20130313
  Receipt Date: 20130319
  Transmission Date: 20140127
  Serious: Yes (Life-Threatening, Hospitalization)
  Sender: FDA-Public Use
  Company Number: FR-B.I. PHARMACEUTICALS,INC./RIDGEFIELD-2013-FF-00707FF

PATIENT
  Age: 63 None
  Sex: Male
  Weight: 85 kg

DRUGS (3)
  1. PRADAXA [Suspect]
     Indication: ATRIAL FIBRILLATION
     Dosage: 300 MG
     Route: 048
     Dates: start: 20130107
  2. ALPRAZOLAM [Concomitant]
  3. SOTALEX [Concomitant]
     Dosage: 80 MG
     Route: 048

REACTIONS (5)
  - Cerebral haematoma [Recovered/Resolved]
  - Headache [Recovered/Resolved]
  - Hypertension [Recovered/Resolved]
  - Visual impairment [Not Recovered/Not Resolved]
  - Disorientation [Not Recovered/Not Resolved]
